FAERS Safety Report 15230193 (Version 1)
Quarter: 2018Q3

REPORT INFORMATION
  Report Type: Spontaneous
  Country: US (occurrence: US)
  Receive Date: 20180802
  Receipt Date: 20180802
  Transmission Date: 20181010
  Serious: Yes (Other)
  Sender: FDA-Public Use
  Company Number: US-ACCORD-066877

PATIENT
  Age: 62 Year
  Sex: Female

DRUGS (14)
  1. DOXORUBICIN [Suspect]
     Active Substance: DOXORUBICIN
     Indication: BREAST CANCER
  2. LIDOCAINE. [Concomitant]
     Active Substance: LIDOCAINE
  3. DOCETAXEL ACCORD [Suspect]
     Active Substance: DOCETAXEL
     Indication: BREAST CANCER
     Dosage: NUMBER OF CYCLES:  15
     Dates: start: 20140402, end: 20161103
  4. XELODA [Suspect]
     Active Substance: CAPECITABINE
     Indication: BREAST CANCER
  5. NYSTOP [Concomitant]
     Active Substance: NYSTATIN
  6. DURAGESIC [Concomitant]
     Active Substance: FENTANYL
  7. PROMETHAZINE [Concomitant]
     Active Substance: PROMETHAZINE\PROMETHAZINE HYDROCHLORIDE
  8. AMBIEN [Concomitant]
     Active Substance: ZOLPIDEM TARTRATE
  9. CYTOXAN [Suspect]
     Active Substance: CYCLOPHOSPHAMIDE
     Indication: BREAST CANCER
  10. HERCEPTIN [Suspect]
     Active Substance: TRASTUZUMAB
     Indication: BREAST CANCER
  11. ONDANSETRON [Concomitant]
     Active Substance: ONDANSETRON
  12. SANCUSO [Concomitant]
     Active Substance: GRANISETRON
  13. FLONASE [Concomitant]
     Active Substance: FLUTICASONE PROPIONATE
  14. NEUPOGEN [Concomitant]
     Active Substance: FILGRASTIM

REACTIONS (1)
  - Alopecia [Not Recovered/Not Resolved]

NARRATIVE: CASE EVENT DATE: 20170503
